FAERS Safety Report 11416081 (Version 1)
Quarter: 2015Q3

REPORT INFORMATION
  Report Type: Spontaneous
  Country: US (occurrence: US)
  Receive Date: 20150825
  Receipt Date: 20150825
  Transmission Date: 20151125
  Serious: No
  Sender: FDA-Public Use
  Company Number: US-TEVA-532057USA

PATIENT
  Age: 70 Year
  Sex: Female
  Weight: 63.49 kg

DRUGS (3)
  1. FEXOFENADINE [Suspect]
     Active Substance: FEXOFENADINE\FEXOFENADINE HYDROCHLORIDE
     Indication: HYPERSENSITIVITY
     Dosage: 180 MILLIGRAM DAILY;
     Route: 048
     Dates: start: 201406
  2. CALCIUM [Concomitant]
     Active Substance: CALCIUM
     Dates: start: 2004
  3. FEXOFENADINE [Suspect]
     Active Substance: FEXOFENADINE\FEXOFENADINE HYDROCHLORIDE
     Dosage: 360 MILLIGRAM DAILY;
     Route: 048
     Dates: start: 20141229, end: 20141229

REACTIONS (2)
  - Drug administered to patient of inappropriate age [Unknown]
  - Extra dose administered [Unknown]

NARRATIVE: CASE EVENT DATE: 2014
